FAERS Safety Report 12007310 (Version 3)
Quarter: 2016Q3

REPORT INFORMATION
  Report Type: Report from Study
  Country: MX (occurrence: MX)
  Receive Date: 20160205
  Receipt Date: 20160705
  Transmission Date: 20161109
  Serious: Yes (Hospitalization)
  Sender: FDA-Public Use
  Company Number: MX-ROCHE-1455571

PATIENT
  Age: 68 Year
  Sex: Female
  Weight: 56 kg

DRUGS (14)
  1. CYMBALTA [Concomitant]
     Active Substance: DULOXETINE HYDROCHLORIDE
     Route: 065
     Dates: start: 2004
  2. CALTRATE [Concomitant]
     Active Substance: CALCIUM CARBONATE
     Route: 065
     Dates: start: 201406
  3. LYRICA [Concomitant]
     Active Substance: PREGABALIN
     Route: 065
     Dates: start: 2004
  4. ATACAND [Concomitant]
     Active Substance: CANDESARTAN CILEXETIL
     Route: 065
  5. ZINNAT [Suspect]
     Active Substance: CEFUROXIME AXETIL
     Indication: PRODUCT USED FOR UNKNOWN INDICATION
     Dosage: ZINNAT ADMINISTRATION IS SCHEDULED FOR 1 MONTH
     Route: 048
     Dates: start: 201406
  6. PSYLLIUM [Concomitant]
     Active Substance: PLANTAGO SEED
     Dosage: ENVELOPES
     Route: 048
  7. ROACTEMRA [Suspect]
     Active Substance: TOCILIZUMAB
     Indication: RHEUMATOID ARTHRITIS
     Dosage: ON 29/FEB/2016, SHE RECEIVED LAST DOSE
     Route: 042
     Dates: start: 2012, end: 201406
  8. MACRODANTIN [Concomitant]
     Active Substance: NITROFURANTOIN
     Dosage: 1 TABLET EVERYDAY
     Route: 048
  9. ROACTEMRA [Suspect]
     Active Substance: TOCILIZUMAB
     Indication: FIBROMYALGIA
     Dosage: 1 ADMINISTRATION EVERY MONTH AND A HALF
     Route: 042
     Dates: start: 201407
  10. REDOXON [Concomitant]
     Active Substance: ASCORBIC ACID
     Route: 065
  11. CONDROSULF [Suspect]
     Active Substance: CHONDROITIN SULFATE (CHICKEN)
     Indication: PRODUCT USED FOR UNKNOWN INDICATION
     Route: 048
     Dates: start: 201406
  12. RIVOTRIL [Concomitant]
     Active Substance: CLONAZEPAM
     Indication: INSOMNIA
     Dosage: 1/2 TABLET , AS REQUIRED
     Route: 048
  13. SENOKOT [Concomitant]
     Active Substance: SENNOSIDES
     Indication: CONSTIPATION
     Route: 065
     Dates: start: 201407
  14. ROCEPHIN [Concomitant]
     Active Substance: CEFTRIAXONE SODIUM
     Route: 065

REACTIONS (19)
  - Burning sensation [Not Recovered/Not Resolved]
  - Dark circles under eyes [Not Recovered/Not Resolved]
  - Dizziness [Recovering/Resolving]
  - Muscular weakness [Recovering/Resolving]
  - Neck pain [Unknown]
  - Dysgeusia [Not Recovered/Not Resolved]
  - Influenza [Recovered/Resolved]
  - Spinal disorder [Unknown]
  - Upper limb fracture [Recovering/Resolving]
  - Inflammation [Not Recovered/Not Resolved]
  - Off label use [Unknown]
  - Spinal operation [Unknown]
  - Arthralgia [Recovering/Resolving]
  - Reflux gastritis [Not Recovered/Not Resolved]
  - Joint swelling [Recovering/Resolving]
  - Coccydynia [Unknown]
  - Fall [Unknown]
  - Back pain [Unknown]
  - Hypoaesthesia [Unknown]

NARRATIVE: CASE EVENT DATE: 2012
